FAERS Safety Report 8443236-5 (Version None)
Quarter: 2012Q2

REPORT INFORMATION
  Report Type: 
  Country: None (occurrence: None)
  Receive Date: 20120617
  Receipt Date: 20120608
  Transmission Date: 20120825
  Serious: Yes (Life-Threatening, Other)
  Sender: FDA-Public Use
  Company Number: US-ROXANE LABORATORIES, INC.-2012-RO-01384RO

PATIENT
  Age: 25 Year
  Sex: Female

DRUGS (7)
  1. LORAZEPAM [Suspect]
     Indication: ACUTE PSYCHOSIS
  2. HALOPERIDOL [Suspect]
     Indication: ACUTE PSYCHOSIS
  3. RISPERIDONE [Suspect]
     Indication: ACUTE PSYCHOSIS
     Dosage: 2 MG
  4. HALOPERIDOL [Suspect]
     Dosage: 2.5 MG
  5. MULTI-VITAMINS [Concomitant]
  6. FERROUS SULFATE TAB [Concomitant]
  7. FOLIC ACID [Concomitant]

REACTIONS (2)
  - NEUROLEPTIC MALIGNANT SYNDROME [None]
  - ESCHERICHIA TEST POSITIVE [None]
